FAERS Safety Report 7722138-3 (Version None)
Quarter: 2011Q3

REPORT INFORMATION
  Report Type: 
  Country: None (occurrence: None)
  Receive Date: 20110831
  Receipt Date: 20110825
  Transmission Date: 20111222
  Serious: Yes (Hospitalization)
  Sender: FDA-Public Use
  Company Number: JP-B.I. PHARMACEUTICALS,INC./RIDGEFIELD-2011-BP-20797NB

PATIENT
  Age: 72 Year
  Sex: Male

DRUGS (7)
  1. EPADEL S [Concomitant]
     Dosage: 1800 MG
     Route: 065
  2. AMLODIN OD [Concomitant]
     Dosage: 5 MG
     Route: 048
  3. PLAVIX [Suspect]
     Indication: CARDIOVASCULAR EVENT PROPHYLAXIS
     Dosage: 75 MG
     Route: 048
     Dates: start: 20080101, end: 20110714
  4. BISOPROLOL FUMARATE [Concomitant]
     Dosage: 2.5 MG
     Route: 048
  5. PRADAXA [Suspect]
     Indication: ATRIAL FIBRILLATION
     Dosage: 220 MG
     Route: 048
     Dates: start: 20110517, end: 20110531
  6. FAMOTIDINE [Concomitant]
     Dosage: 20 MG
     Route: 048
  7. PRAVASTATIN SODIUM [Concomitant]
     Dosage: 10 MG
     Route: 065
     Dates: start: 20100101

REACTIONS (2)
  - MELAENA [None]
  - LARGE INTESTINE CARCINOMA [None]
